FAERS Safety Report 4355659-4 (Version None)
Quarter: 2004Q2

REPORT INFORMATION
  Report Type: 
  Country: None (occurrence: None)
  Receive Date: 20040510
  Receipt Date: 20030114
  Transmission Date: 20050107
  Serious: Yes (Hospitalization, Disabling, Other)
  Sender: FDA-Public Use
  Company Number: US-MERCK-0301USA01135

PATIENT
  Age: 49 Year
  Sex: Male
  Weight: 86 kg

DRUGS (4)
  1. ACETAMINOPHEN AND HYDROCODONE BITARTRATE [Concomitant]
     Route: 065
  2. CELEBREX [Concomitant]
     Route: 065
  3. VIOXX [Suspect]
     Indication: ARTHRALGIA
     Route: 048
     Dates: start: 20001025, end: 20011231
  4. VIOXX [Suspect]
     Indication: JOINT SWELLING
     Route: 048
     Dates: start: 20001025, end: 20011231

REACTIONS (23)
  - ANHEDONIA [None]
  - ARTHROPATHY [None]
  - BACK INJURY [None]
  - BLOOD PRESSURE INCREASED [None]
  - CATARACT [None]
  - CEREBROVASCULAR ACCIDENT [None]
  - EMOTIONAL DISTRESS [None]
  - EYE DISORDER [None]
  - FATIGUE [None]
  - GAIT DISTURBANCE [None]
  - GLAUCOMA [None]
  - HEMIPARESIS [None]
  - IMPAIRED WORK ABILITY [None]
  - INTERVERTEBRAL DISC PROTRUSION [None]
  - JOINT RANGE OF MOTION DECREASED [None]
  - LUMBAR RADICULOPATHY [None]
  - MAJOR DEPRESSION [None]
  - POST PROCEDURAL COMPLICATION [None]
  - POSTURE ABNORMAL [None]
  - PROSTATIC DISORDER [None]
  - PSYCHOMOTOR RETARDATION [None]
  - SLEEP DISORDER [None]
  - TRANSIENT ISCHAEMIC ATTACK [None]
